FAERS Safety Report 19421611 (Version 1)
Quarter: 2021Q2

REPORT INFORMATION
  Report Type: Spontaneous
  Country: CN (occurrence: CN)
  Receive Date: 20210616
  Receipt Date: 20210616
  Transmission Date: 20210717
  Serious: Yes (Hospitalization)
  Sender: FDA-Public Use
  Company Number: CN-ASTRAZENECA-2021A496585

PATIENT
  Sex: Female

DRUGS (8)
  1. SINGULAIR [Concomitant]
     Active Substance: MONTELUKAST SODIUM
     Indication: ILL-DEFINED DISORDER
     Dosage: 1.0DF AS REQUIRED
     Route: 065
  2. SYMBICORT [Suspect]
     Active Substance: BUDESONIDE\FORMOTEROL FUMARATE DIHYDRATE
     Indication: ASTHMA
     Dosage: 80 UG, ONE DOSE AT NIGHT, VIA INHALATION
     Route: 055
  3. TRADITIONAL CHINESE MEDICINE [Concomitant]
     Active Substance: HERBALS\HOMEOPATHICS
     Indication: ILLNESS
     Dosage: ASK THE DOCTOR TO PRESCRIBE FOR FIVE DAYS EACH TIME AND TAKE IT FOR FIVE DAYS
     Route: 065
  4. NEBULISER [Concomitant]
     Dosage: UNKNOWN
     Route: 065
  5. SALINE [Concomitant]
     Active Substance: SODIUM CHLORIDE
     Dosage: UNKNOWN
     Route: 065
  6. TRADITIONAL CHINESE MEDICINE [Concomitant]
     Active Substance: HERBALS\HOMEOPATHICS
     Indication: DISCOMFORT
     Dosage: ASK THE DOCTOR TO PRESCRIBE FOR FIVE DAYS EACH TIME AND TAKE IT FOR FIVE DAYS
     Route: 065
  7. CLARITYNE [Concomitant]
     Active Substance: LORATADINE
     Indication: ASTHMA
     Route: 048
  8. SYMBICORT [Suspect]
     Active Substance: BUDESONIDE\FORMOTEROL FUMARATE DIHYDRATE
     Indication: ASTHMA
     Dosage: 160 UG, ONCE IN THE MORNING AND ONCE IN THE EVENING
     Route: 055

REACTIONS (6)
  - Nasopharyngitis [Not Recovered/Not Resolved]
  - Muscle spasms [Unknown]
  - Blister [Unknown]
  - Hypotension [Not Recovered/Not Resolved]
  - Headache [Recovered/Resolved]
  - Dizziness [Recovering/Resolving]
